FAERS Safety Report 9152416 (Version 3)
Quarter: 2013Q1

REPORT INFORMATION
  Report Type: Report from Study
  Country: DE (occurrence: DE)
  Receive Date: 20130308
  Receipt Date: 20130319
  Transmission Date: 20140127
  Serious: Yes (Hospitalization)
  Sender: FDA-Public Use
  Company Number: DE-009507513-1303DEU001963

PATIENT
  Age: 77 Year
  Sex: Female

DRUGS (2)
  1. MK-0217 [Suspect]
     Indication: OSTEOPOROSIS
     Route: 048
  2. ALENDRONATE SODIUM [Suspect]
     Indication: OSTEOPOROSIS
     Dosage: UNK
     Route: 048

REACTIONS (1)
  - Iliotibial band syndrome [Recovered/Resolved with Sequelae]
